FAERS Safety Report 6414938-7 (Version None)
Quarter: 2009Q4

REPORT INFORMATION
  Report Type: 
  Country: None (occurrence: None)
  Receive Date: 20091026
  Receipt Date: 20090325
  Transmission Date: 20100525
  Serious: No
  Sender: FDA-Public Use
  Company Number: US-ABBOTT-09P-163-0563962-00

PATIENT
  Sex: Female
  Weight: 72.64 kg

DRUGS (4)
  1. LUPRON DEPOT [Suspect]
     Indication: ENDOMETRIOSIS
     Route: 058
     Dates: start: 20081111
  2. MULTI-VITAMIN [Concomitant]
     Indication: VITAMIN SUPPLEMENTATION
     Route: 048
  3. CALTRATE [Concomitant]
     Indication: MINERAL SUPPLEMENTATION
     Dosage: CAN'T RECALL STRENGTH
     Route: 048
  4. GLUCOSAMINE + CHONDROITIN [Concomitant]
     Indication: ARTHROPATHY
     Route: 048

REACTIONS (1)
  - VISION BLURRED [None]
